FAERS Safety Report 13838619 (Version 2)
Quarter: 2017Q4

REPORT INFORMATION
  Report Type: Report from Study
  Country: JP (occurrence: JP)
  Receive Date: 20170807
  Receipt Date: 20171016
  Transmission Date: 20180320
  Serious: Yes (Hospitalization)
  Sender: FDA-Public Use
  Company Number: JP-VIFOR (INTERNATIONAL) INC.-VIT-2017-08325

PATIENT
  Age: 76 Year
  Sex: Male
  Weight: 60.4 kg

DRUGS (29)
  1. WARFARIN [Concomitant]
     Active Substance: WARFARIN
     Route: 048
     Dates: start: 20160802, end: 20160829
  2. BEPRICOR [Concomitant]
     Active Substance: BEPRIDIL
     Route: 048
  3. ALFAROL [Concomitant]
     Active Substance: ALFACALCIDOL
     Route: 048
  4. HYPEN [Concomitant]
     Active Substance: ETODOLAC
     Route: 048
     Dates: end: 20161209
  5. ALOSENN [Concomitant]
     Active Substance: SENNA LEAF
     Route: 048
     Dates: start: 20160519, end: 20160525
  6. L CARTIN FF [Concomitant]
     Active Substance: LEVOCARNITINE
  7. NESP [Concomitant]
     Active Substance: DARBEPOETIN ALFA
     Dates: start: 20161118
  8. ADALAT [Concomitant]
     Active Substance: NIFEDIPINE
     Route: 048
     Dates: end: 20160516
  9. HERBESSER [Concomitant]
     Active Substance: DILTIAZEM HYDROCHLORIDE
     Route: 048
  10. LOXONIN [Concomitant]
     Active Substance: LOXOPROFEN SODIUM
     Route: 048
     Dates: start: 20161109
  11. SELBEX [Concomitant]
     Active Substance: TEPRENONE
     Route: 048
  12. WARFARIN [Concomitant]
     Active Substance: WARFARIN
     Route: 048
     Dates: end: 20161024
  13. WARFARIN [Concomitant]
     Active Substance: WARFARIN
     Route: 048
     Dates: start: 20161025, end: 20161121
  14. VELPHORO [Suspect]
     Active Substance: FERRIC OXYHYDROXIDE
     Indication: HYPERPHOSPHATAEMIA
     Route: 048
     Dates: start: 20160616, end: 20161228
  15. MAINTATE [Concomitant]
     Active Substance: BISOPROLOL FUMARATE
     Route: 048
  16. WARFARIN [Concomitant]
     Active Substance: WARFARIN
     Route: 048
     Dates: start: 20170107, end: 20170206
  17. METHYCOBAL [Concomitant]
     Active Substance: METHYLCOBALAMIN
     Route: 048
  18. NESP [Concomitant]
     Active Substance: DARBEPOETIN ALFA
     Dates: end: 20161111
  19. ADALAT [Concomitant]
     Active Substance: NIFEDIPINE
     Route: 048
     Dates: start: 20160517
  20. WARFARIN [Concomitant]
     Active Substance: WARFARIN
     Route: 048
     Dates: end: 20160801
  21. WARFARIN [Concomitant]
     Active Substance: WARFARIN
     Route: 048
     Dates: start: 20160830
  22. OPALMON [Concomitant]
     Active Substance: LIMAPROST
     Route: 048
  23. VASOLAN [Concomitant]
     Active Substance: VERAPAMIL HYDROCHLORIDE
     Route: 048
  24. TAKEPRON [Concomitant]
     Active Substance: LANSOPRAZOLE
     Route: 048
  25. NESP [Concomitant]
     Active Substance: DARBEPOETIN ALFA
     Dates: start: 20160812
  26. WARFARIN [Concomitant]
     Active Substance: WARFARIN
     Route: 048
     Dates: start: 20161122, end: 20170106
  27. TRAMCET [Concomitant]
     Active Substance: ACETAMINOPHEN\TRAMADOL
     Route: 048
     Dates: start: 20160601, end: 20161209
  28. MYSLEE [Concomitant]
     Active Substance: ZOLPIDEM TARTRATE
     Route: 048
     Dates: start: 20160518, end: 20160915
  29. NESP [Concomitant]
     Active Substance: DARBEPOETIN ALFA
     Dates: end: 20160805

REACTIONS (2)
  - Myelopathy [Unknown]
  - Diarrhoea [Recovered/Resolved]

NARRATIVE: CASE EVENT DATE: 20161121
